FAERS Safety Report 16238301 (Version 1)
Quarter: 2019Q2

REPORT INFORMATION
  Report Type: Spontaneous
  Country: US (occurrence: US)
  Receive Date: 20190425
  Receipt Date: 20190425
  Transmission Date: 20190711
  Serious: No
  Sender: FDA-Public Use
  Company Number: US-PFIZER INC-2015053618

PATIENT
  Age: 89 Year
  Sex: Male
  Weight: 89.8 kg

DRUGS (2)
  1. GABAPENTIN. [Suspect]
     Active Substance: GABAPENTIN
     Indication: NEUROPATHY PERIPHERAL
     Dosage: 4200 MG, UNK (AM: 5 GABAPENTIN 300 MG/ MID DAY: 4 GABAPENTIN 300 MG/ PM: 5 GABAPENTIN 300 MG)
  2. GABAPENTIN. [Suspect]
     Active Substance: GABAPENTIN
     Dosage: 7000 MG, DAILY

REACTIONS (2)
  - Drug effective for unapproved indication [Unknown]
  - Overdose [Unknown]
